FAERS Safety Report 24875308 (Version 1)
Quarter: 2025Q1

REPORT INFORMATION
  Report Type: Spontaneous
  Country: AU (occurrence: AU)
  Receive Date: 20250122
  Receipt Date: 20250122
  Transmission Date: 20250408
  Serious: Yes (Death)
  Sender: SANDOZ
  Company Number: None

PATIENT
  Sex: Male

DRUGS (3)
  1. CEPHALEXIN [Suspect]
     Active Substance: CEPHALEXIN
     Indication: Urinary tract infection
     Dosage: 500 MG, Q48H
     Route: 065
  2. METFORMIN HYDROCHLORIDE [Suspect]
     Active Substance: METFORMIN HYDROCHLORIDE
     Indication: Diabetes mellitus
     Dosage: 1000 MG, Q48H
     Route: 065
  3. NORTRIPTYLINE HYDROCHLORIDE [Suspect]
     Active Substance: NORTRIPTYLINE HYDROCHLORIDE
     Indication: Depression
     Dosage: 125 MG, QD
     Route: 065

REACTIONS (4)
  - Acute kidney injury [Fatal]
  - Toxicity to various agents [Fatal]
  - Urinary retention [Fatal]
  - Accidental overdose [Fatal]

NARRATIVE: CASE EVENT DATE: 20230301
